FAERS Safety Report 9919351 (Version 1)
Quarter: 2014Q1

REPORT INFORMATION
  Report Type: Spontaneous
  Country: CO (occurrence: CO)
  Receive Date: 20140224
  Receipt Date: 20140224
  Transmission Date: 20141002
  Serious: Yes (Hospitalization)
  Sender: FDA-Public Use
  Company Number: CO-PFIZER INC-2014049477

PATIENT
  Age: 67 Year
  Sex: Male

DRUGS (1)
  1. NORVAS [Suspect]
     Indication: BLOOD PRESSURE INCREASED
     Dosage: 10 MG, 1X/DAY
     Route: 048
     Dates: start: 2004

REACTIONS (1)
  - Myocardial infarction [Not Recovered/Not Resolved]
